FAERS Safety Report 8070958-0 (Version None)
Quarter: 2012Q1

REPORT INFORMATION
  Report Type: 
  Country: None (occurrence: None)
  Receive Date: 20120125
  Receipt Date: 20120119
  Transmission Date: 20120608
  Serious: Yes (Hospitalization, Other)
  Sender: FDA-Public Use
  Company Number: US-MERCK-1201USA00804

PATIENT
  Age: 75 Year
  Sex: Female

DRUGS (2)
  1. FOSAMAX [Suspect]
     Route: 048
     Dates: start: 20100801, end: 20110301
  2. FOSAMAX [Suspect]
     Indication: OSTEOPOROSIS
     Route: 048
     Dates: start: 20010101, end: 20070101

REACTIONS (11)
  - MYELODYSPLASTIC SYNDROME [None]
  - DEAFNESS [None]
  - MACULAR DEGENERATION [None]
  - HAEMORRHAGIC ANAEMIA [None]
  - BLEPHARITIS [None]
  - FEMUR FRACTURE [None]
  - DECREASED APPETITE [None]
  - PYELONEPHRITIS [None]
  - OSTEOARTHRITIS [None]
  - ARTHROPATHY [None]
  - SPINAL COLUMN STENOSIS [None]
